FAERS Safety Report 8092460-2 (Version None)
Quarter: 2012Q1

REPORT INFORMATION
  Report Type: 
  Country: None (occurrence: None)
  Receive Date: 20120128
  Receipt Date: 20110728
  Transmission Date: 20120608
  Serious: No
  Sender: FDA-Public Use
  Company Number: US-ABBOTT-11P-163-0842317-00

PATIENT
  Sex: Female

DRUGS (2)
  1. HUMIRA [Suspect]
     Indication: RHEUMATOID ARTHRITIS
     Dates: start: 20110511, end: 20110701
  2. HUMIRA [Suspect]
     Dates: start: 20110701

REACTIONS (3)
  - INFLUENZA LIKE ILLNESS [None]
  - APHONIA [None]
  - LYMPHADENOPATHY [None]
